FAERS Safety Report 8711162 (Version 6)
Quarter: 2013Q2

REPORT INFORMATION
  Report Type: Spontaneous
  Country: US (occurrence: US)
  Receive Date: 20120807
  Receipt Date: 20130524
  Transmission Date: 20140414
  Serious: Yes (Hospitalization, Disabling, Other)
  Sender: FDA-Public Use
  Company Number: US-MERCK-1207USA012801

PATIENT
  Sex: Female
  Weight: 68.27 kg

DRUGS (6)
  1. FOSAMAX [Suspect]
     Indication: OSTEOPOROSIS
     Dosage: 70 MG, UNK
     Route: 048
  2. MIACALCIN [Concomitant]
     Indication: OSTEOPOROSIS
  3. FORTEO [Concomitant]
     Indication: OSTEOPOROSIS
  4. CALCIUM (UNSPECIFIED) (+) VITAMIN D (UNSPECIFIED) [Concomitant]
     Indication: OSTEOPOROSIS
  5. TUMS [Concomitant]
     Indication: OSTEOPOROSIS
  6. VITAMIN D (UNSPECIFIED) [Concomitant]
     Indication: OSTEOPOROSIS

REACTIONS (90)
  - Open reduction of fracture [Unknown]
  - Oophorectomy [Unknown]
  - Appendicectomy [Unknown]
  - Cataract operation [Unknown]
  - Colectomy [Unknown]
  - Knee arthroplasty [Unknown]
  - Spinal fusion surgery [Unknown]
  - Limb operation [Unknown]
  - Vertebroplasty [Unknown]
  - Cholecystectomy [Unknown]
  - Cerebrovascular accident [Unknown]
  - Acute myocardial infarction [Unknown]
  - Disability [Unknown]
  - Myasthenia gravis [Unknown]
  - Humerus fracture [Unknown]
  - Pernicious anaemia [Unknown]
  - Haematocrit decreased [Unknown]
  - Femur fracture [Unknown]
  - Compression fracture [Unknown]
  - Fall [Unknown]
  - Spinal fracture [Unknown]
  - Fall [Unknown]
  - Hypothyroidism [Unknown]
  - Fracture nonunion [Unknown]
  - Adverse event [Unknown]
  - Osteopenia [Unknown]
  - Upper gastrointestinal haemorrhage [Unknown]
  - Lumbar vertebral fracture [Unknown]
  - Compression fracture [Unknown]
  - Pain [Unknown]
  - Back disorder [Unknown]
  - Adverse event [Unknown]
  - Goitre [Unknown]
  - Irritable bowel syndrome [Unknown]
  - Tendon disorder [Unknown]
  - Dyspnoea [Unknown]
  - Intervertebral disc disorder [Unknown]
  - Bursa disorder [Unknown]
  - Hiatus hernia [Unknown]
  - Scoliosis [Unknown]
  - Hysterectomy [Unknown]
  - Biopsy breast [Unknown]
  - Urinary hesitation [Unknown]
  - Paraesthesia [Unknown]
  - Increased tendency to bruise [Unknown]
  - Senile osteoporosis [Unknown]
  - Drug intolerance [Unknown]
  - Hyponatraemia [Unknown]
  - Blood chloride decreased [Unknown]
  - Glaucoma [Unknown]
  - Coronary artery disease [Unknown]
  - Haemorrhagic diathesis [Unknown]
  - Hypertension [Unknown]
  - Deep vein thrombosis [Unknown]
  - Migraine [Unknown]
  - Osteoarthritis [Unknown]
  - Colitis [Unknown]
  - Hypoaesthesia [Unknown]
  - Visual impairment [Unknown]
  - Spondylolisthesis [Unknown]
  - Intervertebral disc disorder [Unknown]
  - Spinal osteoarthritis [Not Recovered/Not Resolved]
  - Lumbar spinal stenosis [Unknown]
  - Vertebral foraminal stenosis [Unknown]
  - Spondylolisthesis [Unknown]
  - Intervertebral disc protrusion [Unknown]
  - Arthropathy [Unknown]
  - Renal cyst [Unknown]
  - Radiculitis [Unknown]
  - Epidural injection [Unknown]
  - Bursitis [Unknown]
  - Procedural complication [Unknown]
  - Vascular calcification [Unknown]
  - Malabsorption [Unknown]
  - Mitral valve prolapse [Unknown]
  - Head injury [Unknown]
  - Peptic ulcer [Unknown]
  - Depression [Unknown]
  - Urinary tract infection [Unknown]
  - Nephrolithiasis [Unknown]
  - Gastrooesophageal reflux disease [Unknown]
  - Gastric ulcer [Unknown]
  - Oedema peripheral [Unknown]
  - Myalgia [Unknown]
  - Arthralgia [Unknown]
  - Arthralgia [Not Recovered/Not Resolved]
  - Nausea [Unknown]
  - Constipation [Unknown]
  - Diarrhoea [Unknown]
  - Musculoskeletal pain [Not Recovered/Not Resolved]
